FAERS Safety Report 5780028-X (Version None)
Quarter: 2008Q2

REPORT INFORMATION
  Report Type: 
  Country: None (occurrence: None)
  Receive Date: 20080613
  Receipt Date: 20080128
  Transmission Date: 20081010
  Serious: Yes (Other)
  Sender: FDA-Public Use
  Company Number: Q08-001

PATIENT
  Age: 65 Year
  Sex: Male

DRUGS (1)
  1. QUADRAMET [Suspect]
     Indication: BONE PAIN

REACTIONS (1)
  - NO ADVERSE EVENT [None]
